FAERS Safety Report 6327765-6 (Version None)
Quarter: 2009Q3

REPORT INFORMATION
  Report Type: 
  Country: None (occurrence: None)
  Receive Date: 20090824
  Receipt Date: 20090819
  Transmission Date: 20100115
  Serious: Yes (Hospitalization)
  Sender: FDA-Public Use
  Company Number: 2009SP021057

PATIENT
  Age: 59 Year
  Sex: Female

DRUGS (4)
  1. TEMODAR [Suspect]
     Indication: GLIOBLASTOMA
     Dosage: 290 MG; PO
     Route: 048
     Dates: start: 20090720, end: 20090724
  2. TOPOTECAN [Suspect]
     Indication: GLIOBLASTOMA
     Dosage: 2 MG; PO
     Route: 048
     Dates: start: 20090721, end: 20090725
  3. CELEXA [Concomitant]
  4. ZOFRAN [Concomitant]

REACTIONS (5)
  - DEHYDRATION [None]
  - NAUSEA [None]
  - ORTHOSTATIC HYPOTENSION [None]
  - PANCYTOPENIA [None]
  - VOMITING [None]
